FAERS Safety Report 20340174 (Version 1)
Quarter: 2022Q1

REPORT INFORMATION
  Report Type: Spontaneous
  Country: GB (occurrence: GB)
  Receive Date: 20220117
  Receipt Date: 20220117
  Transmission Date: 20220423
  Serious: Yes (Other)
  Sender: FDA-Public Use
  Company Number: GB-BAYER-2022A002555

PATIENT

DRUGS (10)
  1. EYLEA [Suspect]
     Active Substance: AFLIBERCEPT
     Indication: Diabetic retinal oedema
     Dosage: RIGHT EYE
     Dates: start: 2018, end: 202010
  2. EYLEA [Suspect]
     Active Substance: AFLIBERCEPT
     Dosage: LEFT EYE
     Dates: start: 202006, end: 202010
  3. EYLEA [Suspect]
     Active Substance: AFLIBERCEPT
     Dosage: 1 DF, ONCE - RIGHT EYE
     Dates: start: 20210210, end: 20210210
  4. EYLEA [Suspect]
     Active Substance: AFLIBERCEPT
     Dosage: 1 DF, ONCE - LEFT EYE
     Dates: start: 20210310, end: 20210310
  5. EYLEA [Suspect]
     Active Substance: AFLIBERCEPT
     Dosage: BILATERAL X3
     Dates: start: 20210710, end: 20210710
  6. INSULIN NOS [Concomitant]
     Active Substance: INSULIN NOS
     Indication: Product used for unknown indication
  7. OMEPRAZOLE [Concomitant]
     Active Substance: OMEPRAZOLE
     Indication: Product used for unknown indication
  8. RANITIDINE [Concomitant]
     Active Substance: RANITIDINE
     Indication: Product used for unknown indication
  9. BISOPROLOL [Concomitant]
     Active Substance: BISOPROLOL
     Indication: Product used for unknown indication
  10. DOMPERIDONE [Concomitant]
     Active Substance: DOMPERIDONE
     Indication: Product used for unknown indication

REACTIONS (10)
  - Abortion spontaneous [Unknown]
  - Macular thickening [Unknown]
  - Maternal exposure during pregnancy [Unknown]
  - Maternal exposure during pregnancy [Unknown]
  - Maternal exposure during breast feeding [Unknown]
  - Diabetic retinal oedema [Unknown]
  - Maculopathy [Unknown]
  - Visual acuity reduced [Unknown]
  - Visual acuity reduced [Recovered/Resolved]
  - Premature labour [Unknown]

NARRATIVE: CASE EVENT DATE: 20200401
